FAERS Safety Report 6347009-9 (Version None)
Quarter: 2009Q3

REPORT INFORMATION
  Report Type: 
  Country: None (occurrence: None)
  Receive Date: 20090910
  Receipt Date: 20090904
  Transmission Date: 20100115
  Serious: Yes (Death, Hospitalization)
  Sender: FDA-Public Use
  Company Number: US-TEVA-195907USA

PATIENT
  Age: 30 Year
  Sex: Female

DRUGS (2)
  1. ONDANSETRON HCL INJECTION 2MG/ML [Suspect]
     Indication: NAUSEA
     Route: 041
     Dates: start: 20090522, end: 20090522
  2. MORPHINE [Concomitant]
     Indication: PAIN
     Route: 030
     Dates: start: 20090522, end: 20090522

REACTIONS (2)
  - MENINGITIS [None]
  - UNRESPONSIVE TO STIMULI [None]
